FAERS Safety Report 24448654 (Version 1)
Quarter: 2024Q4

REPORT INFORMATION
  Report Type: Spontaneous
  Country: US (occurrence: US)
  Receive Date: 20241017
  Receipt Date: 20241017
  Transmission Date: 20250115
  Serious: No
  Sender: BAUSCH AND LOMB
  Company Number: US-BAUSCH-BL-2024-015194

PATIENT
  Sex: Female

DRUGS (1)
  1. CHLORDIAZEPOXIDE HYDROCHLORIDE AND CLIDINIUM BROMIDE [Suspect]
     Active Substance: CHLORDIAZEPOXIDE HYDROCHLORIDE\CLIDINIUM BROMIDE
     Indication: Product used for unknown indication
     Route: 048

REACTIONS (4)
  - Abdominal pain [Unknown]
  - Muscle spasms [Unknown]
  - Condition aggravated [Unknown]
  - Ill-defined disorder [Unknown]
